FAERS Safety Report 6505400-1 (Version None)
Quarter: 2009Q4

REPORT INFORMATION
  Report Type: 
  Country: None (occurrence: None)
  Receive Date: 20091218
  Receipt Date: 20091208
  Transmission Date: 20100525
  Serious: Yes (Hospitalization, Other)
  Sender: FDA-Public Use
  Company Number: US-ABBOTT-09P-163-0606707-00

PATIENT
  Sex: Male
  Weight: 65.376 kg

DRUGS (2)
  1. HUMIRA [Suspect]
     Indication: CROHN'S DISEASE
     Route: 058
     Dates: start: 20090625
  2. PREDNISONE [Concomitant]
     Indication: CROHN'S DISEASE
     Dosage: TAPER
     Dates: start: 20090801, end: 20090901

REACTIONS (3)
  - ABSCESS INTESTINAL [None]
  - COLONIC FISTULA [None]
  - CROHN'S DISEASE [None]
